FAERS Safety Report 17100079 (Version 4)
Quarter: 2020Q1

REPORT INFORMATION
  Report Type: Spontaneous
  Country: JP (occurrence: JP)
  Receive Date: 20191202
  Receipt Date: 20200302
  Transmission Date: 20200409
  Serious: Yes (Death, Life-Threatening, Hospitalization, Other)
  Sender: FDA-Public Use
  Company Number: JP-GILEAD-2019-0439893

PATIENT
  Age: 48 Year
  Sex: Male

DRUGS (6)
  1. FLUCONAZOLE. [Concomitant]
     Active Substance: FLUCONAZOLE
     Indication: OESOPHAGEAL CANDIDIASIS
     Dosage: UNK
     Dates: start: 20180104, end: 20180215
  2. GASTER INJECTION (JAPAN) [Concomitant]
     Indication: PROPHYLAXIS
     Dosage: UNK
     Dates: start: 20180217, end: 20180221
  3. MICAFUNGIN SODIUM [Concomitant]
     Active Substance: MICAFUNGIN SODIUM
     Dosage: UNK
     Dates: start: 20180215, end: 20180221
  4. DOLUTEGRAVIR [Suspect]
     Active Substance: DOLUTEGRAVIR
     Indication: HIV INFECTION
     Dosage: 50 MG
     Route: 048
     Dates: start: 20180104, end: 20180221
  5. ATOVAQUONE. [Concomitant]
     Active Substance: ATOVAQUONE
     Indication: PNEUMOCYSTIS JIROVECII PNEUMONIA
     Dosage: UNK
     Dates: start: 20180215, end: 20180221
  6. DESCOVY [Suspect]
     Active Substance: EMTRICITABINE\TENOFOVIR ALAFENAMIDE FUMARATE
     Indication: HIV INFECTION
     Dosage: 1 DOSAGE FORM, QD
     Route: 048
     Dates: start: 20180104, end: 20180221

REACTIONS (11)
  - Diffuse large B-cell lymphoma [Fatal]
  - Hyperuricaemia [Not Recovered/Not Resolved]
  - Altered state of consciousness [Not Recovered/Not Resolved]
  - Blood pressure decreased [Unknown]
  - Lymphoma [Fatal]
  - Immune reconstitution inflammatory syndrome [Unknown]
  - Cytomegalovirus infection [Not Recovered/Not Resolved]
  - Sepsis [Unknown]
  - Hypoglycaemia [Recovered/Resolved]
  - Respiratory failure [Unknown]
  - Lactic acidosis [Unknown]

NARRATIVE: CASE EVENT DATE: 20180213
